FAERS Safety Report 16582550 (Version 1)
Quarter: 2019Q3

REPORT INFORMATION
  Report Type: Spontaneous
  Country: FR (occurrence: FR)
  Receive Date: 20190717
  Receipt Date: 20190717
  Transmission Date: 20191004
  Serious: Yes (Hospitalization)
  Sender: FDA-Public Use
  Company Number: FR-ACCORD-138677

PATIENT
  Age: 37 Year
  Sex: Male
  Weight: 84 kg

DRUGS (7)
  1. TEGRETOL [Suspect]
     Active Substance: CARBAMAZEPINE
     Indication: NEURALGIA
     Dosage: 400 MG, SCORED TABLET
     Route: 048
     Dates: start: 20190523, end: 20190616
  2. RIVOTRIL [Suspect]
     Active Substance: CLONAZEPAM
     Indication: NEURALGIA
     Dosage: 2.5 MG / ML, ORAL SOLUTION IN DROPS
     Route: 048
     Dates: start: 20190523, end: 20190616
  3. TOUJEO [Concomitant]
     Active Substance: INSULIN GLARGINE
  4. NOVORAPID [Concomitant]
     Active Substance: INSULIN ASPART
  5. ATORVASTATIN [Concomitant]
     Active Substance: ATORVASTATIN
  6. VERSATIS [Concomitant]
     Active Substance: LIDOCAINE
     Dosage: 5%, MEDICATED PLASTER
  7. RAMIPRIL. [Suspect]
     Active Substance: RAMIPRIL
     Indication: HYPERTENSION
     Route: 048
     Dates: start: 20190523, end: 20190616

REACTIONS (3)
  - Rash erythematous [Recovering/Resolving]
  - Eosinophilia [Not Recovered/Not Resolved]
  - Pyrexia [Recovered/Resolved]

NARRATIVE: CASE EVENT DATE: 20190614
